FAERS Safety Report 5847182-2 (Version None)
Quarter: 2008Q3

REPORT INFORMATION
  Report Type: 
  Country: None (occurrence: None)
  Receive Date: 20080815
  Receipt Date: 20080808
  Transmission Date: 20090109
  Serious: Yes (Other)
  Sender: FDA-Public Use
  Company Number: PHHY2008AU17364

PATIENT
  Sex: Female

DRUGS (1)
  1. LAMISIL [Suspect]
     Indication: ONYCHOMYCOSIS
     Dosage: UNK
     Route: 048
     Dates: start: 20070101

REACTIONS (6)
  - ABDOMINAL PAIN UPPER [None]
  - MOUTH ULCERATION [None]
  - OROPHARYNGEAL BLISTERING [None]
  - PAIN [None]
  - TONGUE ULCERATION [None]
  - TOOTH EXTRACTION [None]
